FAERS Safety Report 13903372 (Version 1)
Quarter: 2017Q3

REPORT INFORMATION
  Report Type: Spontaneous
  Country: JP (occurrence: JP)
  Receive Date: 20170824
  Receipt Date: 20170824
  Transmission Date: 20171127
  Serious: Yes (Death, Other)
  Sender: FDA-Public Use
  Company Number: JP-ALLERGAN-1747405US

PATIENT
  Age: 78 Year
  Sex: Male

DRUGS (1)
  1. MESALAZINE UNK [Suspect]
     Active Substance: MESALAMINE
     Indication: INTESTINAL ULCER

REACTIONS (5)
  - Arteriosclerosis [Unknown]
  - Off label use [Unknown]
  - Pulmonary congestion [Fatal]
  - Embolism [Unknown]
  - Renal failure [Fatal]
